FAERS Safety Report 26009124 (Version 1)
Quarter: 2025Q4

REPORT INFORMATION
  Report Type: Spontaneous
  Country: EU (occurrence: EU)
  Receive Date: 20251107
  Receipt Date: 20251107
  Transmission Date: 20260117
  Serious: Yes (Death, Hospitalization, Other)
  Sender: GLAXOSMITHKLINE
  Company Number: None

PATIENT
  Age: 1 Day
  Sex: Female
  Weight: 0.355 kg

DRUGS (4)
  1. SUMATRIPTAN SUCCINATE [Suspect]
     Active Substance: SUMATRIPTAN SUCCINATE
     Indication: Migraine
     Dosage: 20 MG
  2. OXYTOCIN [Suspect]
     Active Substance: OXYTOCIN
     Indication: Induced labour
     Dosage: 2 DF, TOTAL ( 5 UI/1 ML)
  3. NEFOPAM [Suspect]
     Active Substance: NEFOPAM
     Indication: Migraine
     Dosage: 40 MG, TOTAL
  4. TRAMADOL HYDROCHLORIDE [Suspect]
     Active Substance: TRAMADOL HYDROCHLORIDE
     Indication: Migraine
     Dosage: 100 MG, TOTAL

REACTIONS (3)
  - Death neonatal [Fatal]
  - Hypoxia [Fatal]
  - Foetal exposure during pregnancy [Unknown]

NARRATIVE: CASE EVENT DATE: 20250429
